FAERS Safety Report 17454213 (Version 1)
Quarter: 2020Q1

REPORT INFORMATION
  Report Type: Spontaneous
  Country: US (occurrence: US)
  Receive Date: 20200224
  Receipt Date: 20200224
  Transmission Date: 20200409
  Serious: No
  Sender: FDA-Public Use
  Company Number: None

PATIENT
  Age: 23 Year
  Sex: Female
  Weight: 61.65 kg

DRUGS (1)
  1. OSELTAMIVIR PHOSPHATE CAPSULE, USP 75 MG [Suspect]
     Active Substance: OSELTAMIVIR PHOSPHATE
     Indication: INFLUENZA
     Dosage: ?          QUANTITY:10 CAPSULE(S);?
     Route: 048

REACTIONS (3)
  - Diarrhoea [None]
  - Insomnia [None]
  - Gastrointestinal pain [None]

NARRATIVE: CASE EVENT DATE: 20200224
